FAERS Safety Report 12310134 (Version 1)
Quarter: 2016Q2

REPORT INFORMATION
  Report Type: Spontaneous
  Country: US (occurrence: US)
  Receive Date: 20160427
  Receipt Date: 20160427
  Transmission Date: 20160815
  Serious: No
  Sender: FDA-Public Use
  Company Number: US-GLAXOSMITHKLINE-US2016057234

PATIENT
  Age: 63 Year
  Sex: Female

DRUGS (1)
  1. ABREVA [Suspect]
     Active Substance: DOCOSANOL
     Indication: ORAL HERPES
     Dosage: UNK
     Dates: start: 20160421, end: 20160421

REACTIONS (5)
  - Swelling face [Not Recovered/Not Resolved]
  - Swelling [Not Recovered/Not Resolved]
  - Hypersensitivity [Not Recovered/Not Resolved]
  - Lip swelling [Not Recovered/Not Resolved]
  - Drug administration error [Unknown]

NARRATIVE: CASE EVENT DATE: 20160422
